FAERS Safety Report 5399543-6 (Version None)
Quarter: 2007Q3

REPORT INFORMATION
  Report Type: 
  Country: None (occurrence: None)
  Receive Date: 20070727
  Receipt Date: 20070712
  Transmission Date: 20080115
  Serious: Yes (Hospitalization, Other)
  Sender: FDA-Public Use
  Company Number: US-PFIZER INC-2006151781

PATIENT
  Sex: Female
  Weight: 111.1 kg

DRUGS (3)
  1. CELEBREX [Suspect]
     Route: 048
  2. BEXTRA [Suspect]
     Route: 048
     Dates: end: 20010101
  3. VIOXX [Suspect]
     Route: 048

REACTIONS (5)
  - ABDOMINAL PAIN [None]
  - ARRHYTHMIA [None]
  - CORONARY ARTERY OCCLUSION [None]
  - DYSPNOEA [None]
  - ISCHAEMIA [None]
